FAERS Safety Report 6288405-8 (Version None)
Quarter: 2009Q3

REPORT INFORMATION
  Report Type: 
  Country: None (occurrence: None)
  Receive Date: 20090729
  Receipt Date: 20090720
  Transmission Date: 20100115
  Serious: Yes (Death)
  Sender: FDA-Public Use
  Company Number: A0785624A

PATIENT
  Age: 70 Year
  Sex: Female

DRUGS (2)
  1. TYKERB [Suspect]
     Indication: DRUG USE FOR UNKNOWN INDICATION
     Route: 065
  2. XELODA [Concomitant]

REACTIONS (4)
  - DEATH [None]
  - DIARRHOEA [None]
  - FALL [None]
  - HAEMATOMA [None]
